FAERS Safety Report 4615467-3 (Version None)
Quarter: 2005Q2

REPORT INFORMATION
  Report Type: 
  Country: None (occurrence: None)
  Receive Date: 20050311
  Receipt Date: 20041102
  Transmission Date: 20051028
  Serious: No
  Sender: FDA-Public Use
  Company Number: 2004-BP-08826BP

PATIENT
  Sex: Female

DRUGS (6)
  1. SPIRIVA [Suspect]
     Indication: CHRONIC OBSTRUCTIVE PULMONARY DISEASE
     Dosage: 18 MCG (18 MCG, 1 TIME DAILY),IH
     Route: 055
  2. SPIRIVA [Suspect]
  3. ALBUTEROL [Concomitant]
  4. TOPROL (METOPROLOL SUCCINATE) [Concomitant]
  5. ACETYLSALICYLIC ACID SRT [Concomitant]
  6. TYLENOL WITH CODEINE (PANADEINE CO) [Concomitant]

REACTIONS (1)
  - THERAPEUTIC RESPONSE DECREASED [None]
